FAERS Safety Report 10051350 (Version 3)
Quarter: 2014Q2

REPORT INFORMATION
  Report Type: Spontaneous
  Country: US (occurrence: US)
  Receive Date: 20140401
  Receipt Date: 20140512
  Transmission Date: 20141212
  Serious: No
  Sender: FDA-Public Use
  Company Number: US-PFIZER INC-2014088374

PATIENT
  Age: 74 Year
  Sex: Male

DRUGS (13)
  1. VIAGRA [Suspect]
     Indication: ERECTILE DYSFUNCTION
     Dosage: 50 MG, AS NEEDED
     Dates: start: 1999
  2. VIAGRA [Interacting]
     Indication: SEXUAL DYSFUNCTION
  3. ALLOPURINOL [Interacting]
     Dosage: 100 MG, 3X/DAY
  4. COLCRYS [Interacting]
     Dosage: 0.6 MG, 1X/DAY
  5. ACETYLSALICYLIC ACID [Concomitant]
     Dosage: 325 MG, 1X/DAY (1 TABLET EVERY EVENING)
     Route: 048
     Dates: start: 1994, end: 20110512
  6. ACETYLSALICYLIC ACID [Concomitant]
     Dosage: UNK
     Dates: start: 20110517
  7. CIALIS [Concomitant]
     Indication: POLLAKIURIA
     Dosage: 5 MG, ALTERNATE DAY (1 TABLET EVERY 48 HOURS)
     Route: 048
  8. LISINOPRIL [Concomitant]
     Dosage: 5 MG, 1X/DAY (1 TABLET ONE TIME DAILY)
     Route: 048
     Dates: start: 2010
  9. METOPROLOL TARTRATE [Concomitant]
     Dosage: 50 MG, 2X/DAY (1 TABLET TWO TIMES A DAY)
     Route: 048
     Dates: start: 2004
  10. SIMVASTATIN [Concomitant]
     Dosage: 40 MG, 1X/DAY (1 TABLET EVERY BED TIME)
     Route: 048
     Dates: start: 2010
  11. TAMSULOSIN [Concomitant]
     Dosage: 0.4 MG, 1X/DAY (SUSTAINED RELEASE 24 HOURS 1 CAPSULE)
     Route: 048
  12. TRIAMTERENE AND HYDROCHLOROTHIAZID [Concomitant]
     Dosage: 75-50 MG 1 TABLET BY MOUTH EVERY MORNING
     Route: 048
  13. ACETAMINOPHEN [Concomitant]
     Indication: PAIN

REACTIONS (3)
  - Drug interaction [Unknown]
  - Drug effect decreased [Unknown]
  - Drug ineffective [Unknown]
